FAERS Safety Report 12548918 (Version 2)
Quarter: 2016Q3

REPORT INFORMATION
  Report Type: Spontaneous
  Country: US (occurrence: US)
  Receive Date: 20160712
  Receipt Date: 20160818
  Transmission Date: 20161109
  Serious: Yes (Hospitalization)
  Sender: FDA-Public Use
  Company Number: US-MEDA-2016070034

PATIENT
  Age: 84 Year
  Sex: Male
  Weight: 69 kg

DRUGS (18)
  1. ECOTRIN [Concomitant]
     Active Substance: ASPIRIN
     Dates: start: 20050522
  2. LEVOTHYROXINE. [Concomitant]
     Active Substance: LEVOTHYROXINE
     Dates: start: 20111022
  3. ALBUTEROL. [Concomitant]
     Active Substance: ALBUTEROL
     Dates: start: 20150724
  4. TORSEMIDE. [Suspect]
     Active Substance: TORSEMIDE
     Indication: DIURETIC THERAPY
     Route: 048
     Dates: start: 20160609, end: 20160609
  5. ALENDRONATE [Concomitant]
     Active Substance: ALENDRONATE SODIUM
     Dates: start: 20130315
  6. CHOLECALCIFEROL [Concomitant]
     Active Substance: CHOLECALCIFEROL
     Dates: start: 20110212
  7. SULFACETAMIDE SODIUM CLEANSER [Concomitant]
     Dates: start: 20000123
  8. WARFARIN [Concomitant]
     Active Substance: WARFARIN
     Dates: start: 20150818
  9. TAFAMIDIS MEGLUMINE;PLACEBO [Suspect]
     Active Substance: TAFAMIDIS MEGLUMINE
     Indication: CARDIOMYOPATHY
     Route: 048
  10. CALCIUM [Concomitant]
     Active Substance: CALCIUM
     Dates: start: 20000715
  11. TORSEMIDE. [Suspect]
     Active Substance: TORSEMIDE
     Indication: DIURETIC THERAPY
     Route: 048
     Dates: start: 20160607, end: 20160608
  12. TAFAMIDIS MEGLUMINE;PLACEBO [Suspect]
     Active Substance: TAFAMIDIS MEGLUMINE
     Indication: CARDIOMYOPATHY
     Route: 048
     Dates: start: 20150520, end: 20160610
  13. FISH OIL [Concomitant]
     Active Substance: FISH OIL
     Dates: start: 20050222
  14. SIMVASTATIN. [Concomitant]
     Active Substance: SIMVASTATIN
     Dates: start: 20050522
  15. METFORMIN [Concomitant]
     Active Substance: METFORMIN HYDROCHLORIDE
  16. BISACODYL. [Concomitant]
     Active Substance: BISACODYL
     Dates: start: 20150306
  17. TAMSULOSIN [Concomitant]
     Active Substance: TAMSULOSIN
     Dates: start: 20120408
  18. LASIX [Concomitant]
     Active Substance: FUROSEMIDE
     Dates: end: 20160606

REACTIONS (2)
  - Syncope [Recovered/Resolved]
  - Hypovolaemia [Recovered/Resolved]

NARRATIVE: CASE EVENT DATE: 20160609
